FAERS Safety Report 8376381-3 (Version None)
Quarter: 2012Q2

REPORT INFORMATION
  Report Type: 
  Country: None (occurrence: None)
  Receive Date: 20120518
  Receipt Date: 20120503
  Transmission Date: 20120825
  Serious: Yes (Hospitalization)
  Sender: FDA-Public Use
  Company Number: GER/GER/12/0024292

PATIENT
  Age: 71 Year
  Sex: Female

DRUGS (2)
  1. BUDESONIDE/FORMOTEROL DRY POWDER INHALER (BUDESONIDE W/FORMOTEROL FUMA [Concomitant]
  2. CITALOPRAM HYDROBROMIDE [Suspect]
     Indication: DEPRESSION
     Dosage: 10 MG, 1 IN 1 D, 20 MG, 1 IN 1 D

REACTIONS (5)
  - PYREXIA [None]
  - MALAISE [None]
  - DEPRESSION [None]
  - CONDITION AGGRAVATED [None]
  - CUTANEOUS LUPUS ERYTHEMATOSUS [None]
